FAERS Safety Report 21044196 (Version 2)
Quarter: 2022Q3

REPORT INFORMATION
  Report Type: Spontaneous
  Country: TR (occurrence: TR)
  Receive Date: 20220705
  Receipt Date: 20220816
  Transmission Date: 20221027
  Serious: Yes (Other)
  Sender: FDA-Public Use
  Company Number: TR-Merck Healthcare KGaA-9332780

PATIENT
  Age: 56 Year
  Sex: Male
  Weight: 72 kg

DRUGS (5)
  1. ERBITUX [Suspect]
     Active Substance: CETUXIMAB
     Indication: Rectal cancer metastatic
     Dosage: 500 MG/M2, UNKNOWN
     Route: 065
     Dates: start: 20190508, end: 20200107
  2. LEUCOVORIN [Concomitant]
     Active Substance: LEUCOVORIN
     Indication: Rectal cancer metastatic
     Dosage: UNK
     Dates: start: 20190508, end: 2020
  3. FLUOROURACIL [Concomitant]
     Active Substance: FLUOROURACIL
     Indication: Rectal cancer metastatic
     Dosage: UNK
     Dates: start: 20190508, end: 2020
  4. OXALIPLATIN [Concomitant]
     Active Substance: OXALIPLATIN
     Indication: Rectal cancer metastatic
     Dosage: 12 CYCLES
     Dates: start: 20190508, end: 201911
  5. OXALIPLATIN [Concomitant]
     Active Substance: OXALIPLATIN
     Dosage: UNK
     Dates: start: 201911, end: 2020

REACTIONS (3)
  - Malignant neoplasm progression [Not Recovered/Not Resolved]
  - Deep vein thrombosis [Unknown]
  - Off label use [Unknown]

NARRATIVE: CASE EVENT DATE: 20200401
